FAERS Safety Report 25968630 (Version 1)
Quarter: 2025Q4

REPORT INFORMATION
  Report Type: Spontaneous
  Country: EU (occurrence: EU)
  Receive Date: 20251028
  Receipt Date: 20251028
  Transmission Date: 20260117
  Serious: Yes (Congenital Anomaly, Other)
  Sender: CHEPLAPHARM
  Company Number: None

PATIENT
  Sex: Female
  Weight: 1.2269 kg

DRUGS (8)
  1. HYDROXYUREA [Suspect]
     Active Substance: HYDROXYUREA
     Dosage: 2 CAPSULES IN THE MORNING?DAILY DOSE: 1000 MILLIGRAM
     Route: 064
     Dates: start: 20230804, end: 20250903
  2. XARELTO [Suspect]
     Active Substance: RIVAROXABAN
     Dosage: DAILY DOSE: 20 MILLIGRAM
     Route: 064
     Dates: start: 20241031, end: 20250902
  3. DAPAGLIFLOZIN [Suspect]
     Active Substance: DAPAGLIFLOZIN
     Dosage: DAILY DOSE: 10 MILLIGRAM
     Route: 064
     Dates: start: 20230710, end: 20250903
  4. IRBESARTAN [Suspect]
     Active Substance: IRBESARTAN
     Dosage: 1 TABLET IN THE MORNING?DAILY DOSE: 300 MILLIGRAM
     Route: 064
     Dates: start: 20230710, end: 20250902
  5. BISOPROLOL FUMARATE [Suspect]
     Active Substance: BISOPROLOL FUMARATE
     Dosage: 2 TABLETS IN THE MORNING AND 1 TABLET IN THE EVENING?DAILY DOSE: 3 DOSAGE FORM
     Route: 064
  6. LEVETIRACETAM [Suspect]
     Active Substance: LEVETIRACETAM
     Dosage: 3 TABLETS IN THE MORNING AND 3 TABLETS IN THE EVENING?DAILY DOSE: 6 DOSAGE FORM
     Route: 064
  7. LANSOPRAZOLE [Suspect]
     Active Substance: LANSOPRAZOLE
     Dosage: 1 TABLET IN THE EVENING?DAILY DOSE: 1 DOSAGE FORM
     Route: 064
  8. TINZAPARIN [Suspect]
     Active Substance: TINZAPARIN
     Route: 064

REACTIONS (5)
  - Trisomy 21 [Not Recovered/Not Resolved]
  - Foetal growth restriction [Not Recovered/Not Resolved]
  - Premature baby [Not Recovered/Not Resolved]
  - Ventricular septal defect [Unknown]
  - Foetal exposure during pregnancy [Recovered/Resolved]

NARRATIVE: CASE EVENT DATE: 20250227
